FAERS Safety Report 17950310 (Version 2)
Quarter: 2021Q1

REPORT INFORMATION
  Report Type: Spontaneous
  Country: DE (occurrence: DE)
  Receive Date: 20200626
  Receipt Date: 20210119
  Transmission Date: 20210419
  Serious: Yes (Other)
  Sender: FDA-Public Use
  Company Number: DE-BAUSCH-BL-2020-017306

PATIENT
  Age: 79 Year
  Sex: Female

DRUGS (1)
  1. TIM?OPHTAL 0.25% SINE [Suspect]
     Active Substance: TIMOLOL MALEATE
     Indication: INTRAOCULAR PRESSURE INCREASED
     Dosage: FOR SEVERAL YEARS, 2 X 60 PURE BUNDLE PACK
     Route: 065

REACTIONS (4)
  - Autoimmune disorder [Not Recovered/Not Resolved]
  - Genotoxicity [Not Recovered/Not Resolved]
  - Rash [Unknown]
  - Alopecia universalis [Not Recovered/Not Resolved]

NARRATIVE: CASE EVENT DATE: 2019
